FAERS Safety Report 5453597-7 (Version None)
Quarter: 2007Q3

REPORT INFORMATION
  Report Type: 
  Country: None (occurrence: None)
  Receive Date: 20070917
  Receipt Date: 20070906
  Transmission Date: 20080115
  Serious: Yes (Other)
  Sender: FDA-Public Use
  Company Number: DE-JNJFOC-20070901426

PATIENT
  Age: 47 Year
  Sex: Female

DRUGS (1)
  1. CAELYX [Suspect]
     Indication: BREAST CANCER METASTATIC
     Dosage: 3 CYCLES
     Route: 042

REACTIONS (2)
  - RASH VESICULAR [None]
  - VISUAL ACUITY REDUCED [None]
